FAERS Safety Report 21663072 (Version 3)
Quarter: 2023Q1

REPORT INFORMATION
  Report Type: Spontaneous
  Country: US (occurrence: US)
  Receive Date: 20221130
  Receipt Date: 20230316
  Transmission Date: 20230417
  Serious: Yes (Death, Hospitalization, Other)
  Sender: FDA-Public Use
  Company Number: US-PFIZER INC-PV202200082594

PATIENT
  Age: 76 Year
  Sex: Male
  Weight: 64.399 kg

DRUGS (1)
  1. VYNDAMAX [Suspect]
     Active Substance: TAFAMIDIS
     Dosage: 61 MG

REACTIONS (3)
  - Cardiac failure congestive [Fatal]
  - Spinal operation [Fatal]
  - Carpal tunnel syndrome [Fatal]

NARRATIVE: CASE EVENT DATE: 20200101
